FAERS Safety Report 7346614-0 (Version None)
Quarter: 2011Q1

REPORT INFORMATION
  Report Type: 
  Country: None (occurrence: None)
  Receive Date: 20110311
  Receipt Date: 20110302
  Transmission Date: 20110831
  Serious: Yes (Other)
  Sender: FDA-Public Use
  Company Number: MX-JNJFOC-20110303146

PATIENT
  Age: 55 Year
  Sex: Female

DRUGS (5)
  1. LEVAQUIN [Suspect]
     Indication: ACUTE SINUSITIS
     Route: 048
  2. PRIMOGYNOL [Concomitant]
     Route: 065
  3. EUTIROX [Concomitant]
     Route: 065
  4. ACTOLIN [Concomitant]
     Route: 065
  5. CALTRATE [Concomitant]
     Route: 065

REACTIONS (9)
  - ASTHENIA [None]
  - MYALGIA [None]
  - FATIGUE [None]
  - DEPRESSION [None]
  - PAIN IN EXTREMITY [None]
  - OEDEMA PERIPHERAL [None]
  - GAIT DISTURBANCE [None]
  - CONSTIPATION [None]
  - INSOMNIA [None]
